FAERS Safety Report 8827862 (Version 1)
Quarter: 2012Q4

REPORT INFORMATION
  Report Type: 
  Country: PR (occurrence: PR)
  Receive Date: 20121005
  Receipt Date: 20121005
  Transmission Date: 20130627
  Serious: Yes (Death, Hospitalization, Other)
  Sender: FDA-Public Use
  Company Number: PR-JNJFOC-20120911710

PATIENT

DRUGS (8)
  1. DOXORUBICIN [Suspect]
     Indication: NON-HODGKIN^S LYMPHOMA
     Dosage: on day 2
     Route: 042
  2. CYCLOPHOSPHAMIDE [Suspect]
     Indication: NON-HODGKIN^S LYMPHOMA
     Dosage: on day 2
     Route: 042
  3. VINCRISTINE [Suspect]
     Indication: NON-HODGKIN^S LYMPHOMA
     Dosage: on day 2, maximum dose 2mg/m2
     Route: 042
  4. PREDNISONE [Suspect]
     Indication: NON-HODGKIN^S LYMPHOMA
     Dosage: for 5 days
     Route: 048
  5. RITUXIMAB [Suspect]
     Indication: NON-HODGKIN^S LYMPHOMA
     Dosage: on day 1
     Route: 042
  6. NEULASTA [Suspect]
     Indication: PALLIATIVE CARE
     Dosage: on day 3
     Route: 058
  7. LEUKINE [Suspect]
     Indication: PALLIATIVE CARE
     Dosage: on days 6,8,10 and 13
     Route: 065
  8. TRIMETHOPRIM-SULFAMETHOXAZOLE [Concomitant]
     Indication: PROPHYLAXIS
     Route: 065

REACTIONS (4)
  - Death [Fatal]
  - Treatment failure [Unknown]
  - Infection [Unknown]
  - Febrile neutropenia [Unknown]
